FAERS Safety Report 11845104 (Version 1)
Quarter: 2015Q4

REPORT INFORMATION
  Report Type: Spontaneous
  Country: US (occurrence: None)
  Receive Date: 20151216
  Receipt Date: 20151216
  Transmission Date: 20160305
  Serious: Yes (Hospitalization)
  Sender: FDA-Public Use
  Company Number: None

PATIENT
  Age: 76 Year
  Sex: Female

DRUGS (3)
  1. IBRANCE [Suspect]
     Active Substance: PALBOCICLIB
     Indication: BREAST CANCER FEMALE
     Dosage: 1 CAP 21 ON 7 OFF QD ORAL
     Route: 048
     Dates: start: 20150514
  2. LISINOPRIL. [Concomitant]
     Active Substance: LISINOPRIL
  3. METROPOLOL [Concomitant]
     Active Substance: METOPROLOL

REACTIONS (5)
  - Cerebrovascular accident [None]
  - Blood pressure increased [None]
  - Hepatic enzyme increased [None]
  - Therapy cessation [None]
  - Tumour marker increased [None]

NARRATIVE: CASE EVENT DATE: 20151111
